FAERS Safety Report 22116871 (Version 2)
Quarter: 2023Q2

REPORT INFORMATION
  Report Type: Spontaneous
  Country: US (occurrence: US)
  Receive Date: 20230320
  Receipt Date: 20230601
  Transmission Date: 20230721
  Serious: Yes (Hospitalization, Other)
  Sender: FDA-Public Use
  Company Number: US-PFIZER INC-202300117493

PATIENT
  Age: 62 Year
  Sex: Female

DRUGS (1)
  1. XELJANZ [Suspect]
     Active Substance: TOFACITINIB CITRATE
     Indication: Rheumatoid arthritis
     Dosage: 5 MG, DAILY
     Route: 048
     Dates: end: 2023

REACTIONS (27)
  - Cerebrovascular accident [Recovering/Resolving]
  - Transient ischaemic attack [Unknown]
  - Fall [Unknown]
  - Ankle fracture [Unknown]
  - Hemiparesis [Unknown]
  - Limb discomfort [Not Recovered/Not Resolved]
  - Blood pressure increased [Unknown]
  - Speech disorder [Unknown]
  - Fatigue [Unknown]
  - Pyrexia [Unknown]
  - Visual impairment [Unknown]
  - Cough [Unknown]
  - Abdominal pain [Unknown]
  - Temperature intolerance [Unknown]
  - Gynaecomastia [Unknown]
  - Temperature intolerance [Unknown]
  - Hot flush [Unknown]
  - Polydipsia [Unknown]
  - Alopecia [Unknown]
  - Hirsutism [Unknown]
  - Arthralgia [Unknown]
  - Musculoskeletal stiffness [Unknown]
  - Muscular weakness [Unknown]
  - Emotional distress [Unknown]
  - Pain in extremity [Unknown]
  - Hypertension [Unknown]
  - Off label use [Unknown]

NARRATIVE: CASE EVENT DATE: 20220719
